FAERS Safety Report 23845368 (Version 5)
Quarter: 2024Q3

REPORT INFORMATION
  Report Type: Spontaneous
  Country: US (occurrence: US)
  Receive Date: 20240511
  Receipt Date: 20240820
  Transmission Date: 20241017
  Serious: Yes (Other)
  Sender: TRAVERE THERAPEUTICS
  Company Number: US-TRAVERE-2024TVT00344

PATIENT
  Age: 44 Year
  Sex: Female

DRUGS (13)
  1. FILSPARI [Suspect]
     Active Substance: SPARSENTAN
     Indication: IgA nephropathy
     Route: 048
     Dates: start: 20240401
  2. FARXIGA [Concomitant]
     Active Substance: DAPAGLIFLOZIN PROPANEDIOL
  3. TRESIBA [Concomitant]
     Active Substance: INSULIN DEGLUDEC
  4. NOVOLOG [Concomitant]
     Active Substance: INSULIN ASPART
  5. OMEPRAZOLE [Concomitant]
     Active Substance: OMEPRAZOLE
  6. OZEMPIC [Concomitant]
     Active Substance: SEMAGLUTIDE
  7. ROSUVASTATIN CALCIUM [Concomitant]
     Active Substance: ROSUVASTATIN CALCIUM
  8. TOPIRAMATE [Concomitant]
     Active Substance: TOPIRAMATE
  9. PREGABALIN [Concomitant]
     Active Substance: PREGABALIN
  10. TIZANIDINE HYDROCHLORIDE [Concomitant]
     Active Substance: TIZANIDINE HYDROCHLORIDE
  11. LORAZEPAM [Concomitant]
     Active Substance: LORAZEPAM
  12. CODEINE SULFATE [Concomitant]
     Active Substance: CODEINE SULFATE
  13. TYLENOL [Concomitant]
     Active Substance: ACETAMINOPHEN

REACTIONS (8)
  - Haematochezia [Unknown]
  - Diarrhoea [Recovering/Resolving]
  - Dizziness [Recovered/Resolved]
  - Nausea [Unknown]
  - Blood glucose increased [Unknown]
  - Asthenia [Unknown]
  - Decreased appetite [Unknown]
  - Urinary tract infection [Unknown]

NARRATIVE: CASE EVENT DATE: 20240401
